FAERS Safety Report 5297799-1 (Version None)
Quarter: 2007Q2

REPORT INFORMATION
  Report Type: 
  Country: None (occurrence: None)
  Receive Date: 20070413
  Receipt Date: 20070413
  Transmission Date: 20071010
  Serious: Yes (Life-Threatening)
  Sender: FDA-Public Use
  Company Number: None

PATIENT
  Age: 47 Year
  Sex: Male

DRUGS (1)
  1. PROFILNINE [Suspect]
     Indication: SUBDURAL HAEMATOMA
     Dosage: 4120 UNITS X 1 IV
     Route: 042
     Dates: start: 20070331

REACTIONS (2)
  - HAEMOTHORAX [None]
  - PLEURAL EFFUSION [None]
